FAERS Safety Report 8450930-9 (Version None)
Quarter: 2012Q2

REPORT INFORMATION
  Report Type: 
  Country: None (occurrence: None)
  Receive Date: 20120620
  Receipt Date: 20120612
  Transmission Date: 20120825
  Serious: No
  Sender: FDA-Public Use
  Company Number: US-UCBSA-059602

PATIENT
  Age: 46 Year
  Sex: Male
  Weight: 84.4 kg

DRUGS (1)
  1. LACOSAMIDE [Suspect]

REACTIONS (1)
  - BRADYCARDIA [None]
